FAERS Safety Report 16982274 (Version 2)
Quarter: 2024Q2

REPORT INFORMATION
  Report Type: Spontaneous
  Country: FR (occurrence: FR)
  Receive Date: 20191101
  Receipt Date: 20240403
  Transmission Date: 20240716
  Serious: Yes (Hospitalization)
  Sender: FDA-Public Use
  Company Number: None

PATIENT
  Age: 17 Year
  Sex: Female
  Weight: 30 kg

DRUGS (13)
  1. MYCOPHENOLATE MOFETIL [Interacting]
     Active Substance: MYCOPHENOLATE MOFETIL
     Indication: Product used for unknown indication
     Route: 048
     Dates: start: 20190308
  2. VALGANCICLOVIR [Interacting]
     Active Substance: VALGANCICLOVIR
     Indication: Antiviral prophylaxis
     Route: 048
     Dates: start: 20190308, end: 20190902
  3. GANCICLOVIR [Interacting]
     Active Substance: GANCICLOVIR
     Indication: Cytomegalovirus viraemia
     Route: 042
     Dates: start: 20190503, end: 20190515
  4. LORAZEPAM [Suspect]
     Active Substance: LORAZEPAM
     Indication: Product used for unknown indication
     Route: 048
     Dates: start: 20190416, end: 20190518
  5. LANSOPRAZOLE [Suspect]
     Active Substance: LANSOPRAZOLE
     Indication: Product used for unknown indication
     Route: 048
     Dates: start: 20190416, end: 20190518
  6. KARDEGIC [Concomitant]
     Active Substance: ASPIRIN DL-LYSINE
     Dosage: STRENGTH: 75 MG POWDER FOR ORAL SOLUTION IN SACHET-DOSE
     Route: 048
     Dates: start: 20190401, end: 20190725
  7. AMIODARONE [Concomitant]
     Active Substance: AMIODARONE
     Route: 048
     Dates: start: 20190331
  8. PREDNISONE [Concomitant]
     Active Substance: PREDNISONE
     Route: 048
     Dates: start: 20190311, end: 20190730
  9. TACROLIMUS [Concomitant]
     Active Substance: TACROLIMUS
     Route: 048
     Dates: start: 20190308
  10. CLOPIDOGREL [Concomitant]
     Active Substance: CLOPIDOGREL BISULFATE
     Route: 048
     Dates: start: 20190401, end: 20190612
  11. VORICONAZOLE [Concomitant]
     Active Substance: VORICONAZOLE
     Route: 042
     Dates: start: 20190401, end: 20190523
  12. FERROUS SULFATE [Concomitant]
     Active Substance: FERROUS SULFATE
     Dosage: STRENGTH: 80 MG, COATED TABLET
     Route: 048
     Dates: start: 20190427, end: 20190502
  13. GANCICLOVIR [Interacting]
     Active Substance: GANCICLOVIR
     Indication: Cytomegalovirus viraemia
     Dates: start: 20190503, end: 20190515

REACTIONS (2)
  - Drug interaction [Unknown]
  - Agranulocytosis [Recovered/Resolved]

NARRATIVE: CASE EVENT DATE: 20190506
